FAERS Safety Report 15080014 (Version 2)
Quarter: 2019Q2

REPORT INFORMATION
  Report Type: Report from Study
  Country: US (occurrence: US)
  Receive Date: 20180627
  Receipt Date: 20190430
  Transmission Date: 20190711
  Serious: Yes (Hospitalization, Other)
  Sender: FDA-Public Use
  Company Number: PHHY2018US009273

PATIENT
  Age: 56 Year
  Sex: Female

DRUGS (1)
  1. GILENYA [Suspect]
     Active Substance: FINGOLIMOD HYDROCHLORIDE
     Indication: MULTIPLE SCLEROSIS
     Dosage: UNK, QD
     Route: 048

REACTIONS (17)
  - Pain in extremity [Unknown]
  - Fall [Recovered/Resolved]
  - Fine motor skill dysfunction [Unknown]
  - Erythema [Unknown]
  - Neuralgia [Unknown]
  - Somnolence [Recovered/Resolved]
  - Alopecia [Unknown]
  - Cellulitis [Recovered/Resolved]
  - Hypoaesthesia [Unknown]
  - Insomnia [Unknown]
  - Skin laceration [Unknown]
  - Oedema peripheral [Recovered/Resolved]
  - Neuropathy peripheral [Unknown]
  - Contusion [Recovered/Resolved]
  - Muscle spasms [Unknown]
  - Alanine aminotransferase increased [Unknown]
  - Fatigue [Unknown]

NARRATIVE: CASE EVENT DATE: 20171222
